FAERS Safety Report 5358215-4 (Version None)
Quarter: 2007Q2

REPORT INFORMATION
  Report Type: 
  Country: None (occurrence: None)
  Receive Date: 20070530
  Receipt Date: 20061004
  Transmission Date: 20071010
  Serious: Yes (Hospitalization)
  Sender: FDA-Public Use
  Company Number: US200604004378

PATIENT
  Age: 40 Year
  Sex: Male
  Weight: 122.4 kg

DRUGS (5)
  1. ZYPREXA [Suspect]
     Dosage: SEE IMAGE
     Dates: start: 19991216, end: 20020705
  2. SEROQUEL /UNK/(QUETIAPINE FUMARATE) [Concomitant]
  3. RISPERIDONE [Concomitant]
  4. SERTRALINE [Concomitant]
  5. SYMBYAX (FLUOXETINE, OLANAZAPINE) [Concomitant]

REACTIONS (5)
  - BLOOD CHOLESTEROL INCREASED [None]
  - DIABETES MELLITUS NON-INSULIN-DEPENDENT [None]
  - HYPERTENSION [None]
  - METABOLIC DISORDER [None]
  - OBESITY [None]
